FAERS Safety Report 11309167 (Version 1)
Quarter: 2015Q3

REPORT INFORMATION
  Report Type: Spontaneous
  Country: US (occurrence: US)
  Receive Date: 20150724
  Receipt Date: 20150724
  Transmission Date: 20151125
  Serious: No
  Sender: FDA-Public Use
  Company Number: US-009507513-1507USA009953

PATIENT
  Age: 30 Year
  Sex: Female

DRUGS (2)
  1. BELSOMRA [Suspect]
     Active Substance: SUVOREXANT
     Dosage: 15 MG TABLETS FOR THE FOLLOWING 3 NIGHTS
     Route: 048
     Dates: start: 201507, end: 20150711
  2. BELSOMRA [Suspect]
     Active Substance: SUVOREXANT
     Indication: INSOMNIA
     Dosage: 10 MG FOR 3 NIGHTS
     Route: 048
     Dates: start: 20150705, end: 20150707

REACTIONS (1)
  - Drug ineffective [Not Recovered/Not Resolved]

NARRATIVE: CASE EVENT DATE: 20150706
